FAERS Safety Report 5296784-3 (Version None)
Quarter: 2007Q2

REPORT INFORMATION
  Report Type: 
  Country: None (occurrence: None)
  Receive Date: 20070413
  Receipt Date: 20070403
  Transmission Date: 20071010
  Serious: Yes (Other)
  Sender: FDA-Public Use
  Company Number: CA-PFIZER INC-2007027055

PATIENT
  Age: 58 Year
  Sex: Female

DRUGS (3)
  1. XALATAN [Suspect]
     Indication: GLAUCOMA
     Route: 047
     Dates: start: 20060201, end: 20070322
  2. NAPROXEN [Suspect]
     Route: 048
  3. ADVIL [Concomitant]
     Route: 048

REACTIONS (5)
  - ASTHMA [None]
  - COUGH [None]
  - DIAPHRAGMATIC INJURY [None]
  - INTRAOCULAR PRESSURE INCREASED [None]
  - LUNG DISORDER [None]
